FAERS Safety Report 12997576 (Version 1)
Quarter: 2016Q4

REPORT INFORMATION
  Report Type: Spontaneous
  Country: GB (occurrence: GB)
  Receive Date: 20161205
  Receipt Date: 20161205
  Transmission Date: 20170207
  Serious: Yes (Other)
  Sender: FDA-Public Use
  Company Number: GB-TEVA-715948ACC

PATIENT
  Sex: Male

DRUGS (11)
  1. CLENIL MODULITE [Concomitant]
     Active Substance: BECLOMETHASONE DIPROPIONATE
     Route: 055
  2. BETAHISTINE [Concomitant]
     Active Substance: BETAHISTINE
  3. ATORVASTATIN [Concomitant]
     Active Substance: ATORVASTATIN
     Dosage: 80 MILLIGRAM DAILY;
  4. ALLOPURINOL. [Concomitant]
     Active Substance: ALLOPURINOL
     Dosage: 400 MILLIGRAM DAILY; IN THE MORNING
  5. PANTOPRAZOLE [Concomitant]
     Active Substance: PANTOPRAZOLE SODIUM
  6. VENTOLIN [Concomitant]
     Active Substance: ALBUTEROL SULFATE
     Route: 055
  7. LISINOPRIL. [Concomitant]
     Active Substance: LISINOPRIL
     Dosage: 5 MILLIGRAM DAILY;
  8. TAMSULOSIN [Suspect]
     Active Substance: TAMSULOSIN
     Dosage: 400 MICROGRAM DAILY;
     Dates: start: 201608
  9. BENDROFLUMETHIAZIDE [Concomitant]
     Active Substance: BENDROFLUMETHIAZIDE
     Dosage: 2.5 MILLIGRAM DAILY;
  10. DIAZEPAM. [Concomitant]
     Active Substance: DIAZEPAM
  11. CLOPIDOGREL [Concomitant]
     Active Substance: CLOPIDOGREL BISULFATE
     Dosage: 75 MILLIGRAM DAILY;

REACTIONS (1)
  - Nipple pain [Unknown]

NARRATIVE: CASE EVENT DATE: 201610
